FAERS Safety Report 7208862-X (Version None)
Quarter: 2011Q1

REPORT INFORMATION
  Report Type: 
  Country: None (occurrence: None)
  Receive Date: 20110104
  Receipt Date: 20101222
  Transmission Date: 20110831
  Serious: Yes (Other)
  Sender: FDA-Public Use
  Company Number: PHHY2010RO62420

PATIENT
  Sex: Female

DRUGS (1)
  1. CGS 20267 [Suspect]
     Indication: ANTIOESTROGEN THERAPY
     Dosage: 2.5 MG, UNK
     Dates: start: 20090715

REACTIONS (1)
  - THYROID NEOPLASM [None]
